FAERS Safety Report 10957576 (Version 1)
Quarter: 2015Q1

REPORT INFORMATION
  Report Type: Spontaneous
  Country: US (occurrence: US)
  Receive Date: 20150326
  Receipt Date: 20150326
  Transmission Date: 20150721
  Serious: Yes (Hospitalization, Other)
  Sender: FDA-Public Use
  Company Number: US-PERRIGO-15US003057

PATIENT
  Sex: Male

DRUGS (2)
  1. MAGNESIUM HYDROXIDE 80 MG/ML MINT 332 [Suspect]
     Active Substance: MAGNESIUM HYDROXIDE
     Indication: CONSTIPATION
     Dosage: 4800 MG, TID
     Route: 048
     Dates: start: 20150311, end: 20150315
  2. DRUGS FOR CONSTIPATION [Suspect]
     Active Substance: UNSPECIFIED INGREDIENT
     Indication: CONSTIPATION
     Dosage: UNKNOWN, UNKNOWN
     Route: 048
     Dates: start: 20150311, end: 20150315

REACTIONS (3)
  - Overdose [Recovered/Resolved]
  - Diarrhoea [Not Recovered/Not Resolved]
  - Faeces discoloured [Unknown]

NARRATIVE: CASE EVENT DATE: 20150311
